FAERS Safety Report 26016117 (Version 1)
Quarter: 2025Q4

REPORT INFORMATION
  Report Type: Spontaneous
  Country: US (occurrence: US)
  Receive Date: 20251110
  Receipt Date: 20251110
  Transmission Date: 20260117
  Serious: No
  Sender: SANDOZ
  Company Number: US-SANDOZ-SDZ2025US082591

PATIENT
  Sex: Female

DRUGS (1)
  1. ALPRAZOLAM [Suspect]
     Active Substance: ALPRAZOLAM
     Indication: Sleep disorder
     Dosage: FREQUENCY: 1X DAILY WEEKDAYS, 2X DAILY WEEKENDS
     Route: 065

REACTIONS (5)
  - Drug ineffective [Unknown]
  - Depression [Unknown]
  - Anxiety [Unknown]
  - Product knowledge deficit [Unknown]
  - Wrong technique in product usage process [Unknown]
